FAERS Safety Report 15254009 (Version 1)
Quarter: 2018Q3

REPORT INFORMATION
  Report Type: Spontaneous
  Country: US (occurrence: US)
  Receive Date: 20180808
  Receipt Date: 20180808
  Transmission Date: 20181010
  Serious: Yes (Death, Other)
  Sender: FDA-Public Use
  Company Number: US-BRISTOL-MYERS SQUIBB COMPANY-BMS-2018-070676

PATIENT
  Sex: Female
  Weight: 80.27 kg

DRUGS (1)
  1. YERVOY [Suspect]
     Active Substance: IPILIMUMAB
     Indication: SMALL CELL LUNG CANCER
     Dosage: 80 MG, EVERY 84 DAYS
     Route: 042
     Dates: start: 20180126, end: 20180223

REACTIONS (2)
  - Death [Fatal]
  - Product use in unapproved indication [Unknown]
